FAERS Safety Report 15821022 (Version 2)
Quarter: 2019Q3

REPORT INFORMATION
  Report Type: Spontaneous
  Country: US (occurrence: US)
  Receive Date: 20190114
  Receipt Date: 20190730
  Transmission Date: 20191004
  Serious: No
  Sender: FDA-Public Use
  Company Number: US-BIOGEN-2019BI00680206

PATIENT
  Age: 52 Year
  Sex: Female

DRUGS (1)
  1. TYSABRI [Suspect]
     Active Substance: NATALIZUMAB
     Indication: MULTIPLE SCLEROSIS
     Dosage: GIVEN OVER ONE HOUR??FORM: CONCEN AND DILUENT FOR SOLN FOR INFUSION
     Route: 050
     Dates: start: 20181227

REACTIONS (5)
  - Paranoia [Unknown]
  - Headache [Unknown]
  - Vision blurred [Unknown]
  - Photophobia [Not Recovered/Not Resolved]
  - Anxiety [Not Recovered/Not Resolved]

NARRATIVE: CASE EVENT DATE: 20181227
